FAERS Safety Report 13439434 (Version 2)
Quarter: 2017Q2

REPORT INFORMATION
  Report Type: Spontaneous
  Country: NL (occurrence: NL)
  Receive Date: 20170413
  Receipt Date: 20170419
  Transmission Date: 20170830
  Serious: Yes (Other)
  Sender: FDA-Public Use
  Company Number: NL-CELLTRION INC.-2017NL004612

PATIENT

DRUGS (7)
  1. INFLIXIMAB HOSPIRA [Suspect]
     Active Substance: INFLIXIMAB
     Indication: RHEUMATOID ARTHRITIS
     Dosage: UNK
     Route: 065
  2. ROFECOXIB [Concomitant]
     Active Substance: ROFECOXIB
  3. HYDROCHLOROTHIAZIDE. [Concomitant]
     Active Substance: HYDROCHLOROTHIAZIDE
  4. ATENOLOL. [Concomitant]
     Active Substance: ATENOLOL
  5. ENALAPRIL [Concomitant]
     Active Substance: ENALAPRIL
  6. SALICYLIC ACID. [Concomitant]
     Active Substance: SALICYLIC ACID
  7. TERFENADINE [Concomitant]
     Active Substance: TERFENADINE

REACTIONS (1)
  - Toxic optic neuropathy [Not Recovered/Not Resolved]
